FAERS Safety Report 16197245 (Version 1)
Quarter: 2019Q2

REPORT INFORMATION
  Report Type: Spontaneous
  Country: US (occurrence: US)
  Receive Date: 20190415
  Receipt Date: 20190415
  Transmission Date: 20190711
  Serious: Yes (Other)
  Sender: FDA-Public Use
  Company Number: US-PFIZER INC-2019156986

PATIENT
  Age: 74 Year
  Sex: Female
  Weight: 96.15 kg

DRUGS (3)
  1. CARBOPLATIN. [Suspect]
     Active Substance: CARBOPLATIN
     Dosage: 300 MG, CYCLIC (EVERY 21 DAYS FOR 6 CYCLES)
  2. PACLITAXEL. [Suspect]
     Active Substance: PACLITAXEL
     Dosage: 200 MG, CYCLIC (EVERY 21 DAYS FOR 6 CYCLES)
  3. AVASTIN [Suspect]
     Active Substance: BEVACIZUMAB
     Dosage: 1400 MG, CYCLIC (EVERY 21 DAYS FOR 6 CYCLES)
     Route: 042

REACTIONS (1)
  - Anaemia [Unknown]
